FAERS Safety Report 9350931 (Version 1)
Quarter: 2013Q2

REPORT INFORMATION
  Report Type: Spontaneous
  Country: US (occurrence: US)
  Receive Date: 20130617
  Receipt Date: 20130617
  Transmission Date: 20140414
  Serious: No
  Sender: FDA-Public Use
  Company Number: US-PFIZER INC-2013181226

PATIENT
  Age: 47 Year
  Sex: Female

DRUGS (10)
  1. LYRICA [Suspect]
     Indication: PAIN IN EXTREMITY
     Dosage: 50 MG, 1X/DAY
     Dates: start: 201305
  2. LYRICA [Suspect]
     Dosage: 50 MG, 2X/DAY
     Dates: start: 2013
  3. LYRICA [Suspect]
     Dosage: 50 MG, 3X/DAY
     Dates: start: 2013
  4. BACLOFEN [Concomitant]
     Dosage: UNK
  5. CYMBALTA [Concomitant]
     Dosage: UNK
  6. PRAVASTATIN [Concomitant]
     Dosage: UNK
  7. IODINE [Concomitant]
     Dosage: UNK
  8. IRON [Concomitant]
     Dosage: UNK
  9. KLOR-CON [Concomitant]
     Dosage: UNK
  10. HYDROCHLOROTHIAZIDE, TRIAMTERENE [Concomitant]
     Dosage: UNK

REACTIONS (3)
  - Fatigue [Not Recovered/Not Resolved]
  - Somnolence [Not Recovered/Not Resolved]
  - Activities of daily living impaired [Not Recovered/Not Resolved]
